FAERS Safety Report 14570442 (Version 3)
Quarter: 2022Q2

REPORT INFORMATION
  Report Type: Spontaneous
  Country: FR (occurrence: FR)
  Receive Date: 20180226
  Receipt Date: 20220414
  Transmission Date: 20220721
  Serious: Yes (Death, Hospitalization)
  Sender: FDA-Public Use
  Company Number: None

PATIENT
  Age: 19 Year
  Sex: Female

DRUGS (10)
  1. VALIUM [Suspect]
     Active Substance: DIAZEPAM
     Indication: Psychiatric decompensation
     Route: 048
     Dates: start: 20171219, end: 20171227
  2. TRIMEPRAZINE [Suspect]
     Active Substance: TRIMEPRAZINE
     Indication: Psychiatric decompensation
     Dosage: 4 PER CENT, ORAL SOLUTION IN DROPS
     Route: 048
     Dates: start: 20171219, end: 20171227
  3. FLUPENTIXOL [Suspect]
     Active Substance: FLUPENTIXOL
     Indication: Psychiatric decompensation
     Dosage: 4 PER CENT, ORAL SOLUTION IN DROPS
     Route: 048
     Dates: start: 20171219, end: 20171227
  4. ZYPREXA [Suspect]
     Active Substance: OLANZAPINE
     Indication: Psychiatric decompensation
     Route: 048
     Dates: start: 20171220, end: 20171227
  5. VALPROATE SODIUM [Suspect]
     Active Substance: VALPROATE SODIUM
     Indication: Psychiatric decompensation
     Dosage: 57.64 MG/ML, SYRUP
     Route: 048
     Dates: start: 20171220, end: 20171223
  6. ABILIFY MAINTENA [Suspect]
     Active Substance: ARIPIPRAZOLE
     Indication: Psychiatric decompensation
     Route: 030
     Dates: start: 20171206, end: 20171206
  7. ZOLPIDEM TARTRATE [Suspect]
     Active Substance: ZOLPIDEM TARTRATE
     Indication: Psychiatric decompensation
     Route: 048
     Dates: start: 20171219, end: 20171227
  8. IMODIUM [Concomitant]
     Active Substance: LOPERAMIDE HYDROCHLORIDE
     Indication: Product used for unknown indication
     Route: 048
     Dates: start: 20171220, end: 20171220
  9. ASCABIOL (FRANCE) [Concomitant]
     Route: 003
     Dates: start: 20171219, end: 20171219
  10. LOXAPINE [Concomitant]
     Active Substance: LOXAPINE
     Route: 030
     Dates: start: 20171219, end: 20171219

REACTIONS (1)
  - Cardio-respiratory arrest [Fatal]

NARRATIVE: CASE EVENT DATE: 20171227
